FAERS Safety Report 10572826 (Version 1)
Quarter: 2014Q4

REPORT INFORMATION
  Report Type: Spontaneous
  Country: US (occurrence: None)
  Receive Date: 20141107
  Receipt Date: 20141107
  Transmission Date: 20150529
  Serious: No
  Sender: FDA-Public Use
  Company Number: None

PATIENT
  Age: 59 Year
  Sex: Female

DRUGS (1)
  1. ROPINIROLE 4MG [Suspect]
     Active Substance: ROPINIROLE
     Indication: RESTLESS LEGS SYNDROME

REACTIONS (3)
  - Restless legs syndrome [None]
  - Treatment failure [None]
  - Product substitution issue [None]

NARRATIVE: CASE EVENT DATE: 20141101
